FAERS Safety Report 8894150 (Version 1)
Quarter: 2012Q4

REPORT INFORMATION
  Report Type: 
  Country: IE (occurrence: IE)
  Receive Date: 20121108
  Receipt Date: 20121108
  Transmission Date: 20130627
  Serious: Yes (Other)
  Sender: FDA-Public Use
  Company Number: IE-ROXANE LABORATORIES, INC.-2012-RO-02339RO

PATIENT
  Age: 30 Year
  Sex: Female

DRUGS (2)
  1. METHADONE [Suspect]
     Indication: DRUG DEPENDENCE
     Dosage: 80 mg
  2. METHADONE [Suspect]
     Dosage: 70 mg

REACTIONS (3)
  - Galactorrhoea [Unknown]
  - Hypoprolactinaemia [Unknown]
  - Blood alkaline phosphatase increased [Unknown]
